FAERS Safety Report 23310084 (Version 1)
Quarter: 2023Q4

REPORT INFORMATION
  Report Type: Spontaneous
  Country: US (occurrence: None)
  Receive Date: 20231218
  Receipt Date: 20231218
  Transmission Date: 20240110
  Serious: No
  Sender: FDA-Public Use
  Company Number: None

PATIENT
  Age: 78 Year
  Sex: Male
  Weight: 80.55 kg

DRUGS (6)
  1. MUCINEX CHILDRENS DAY TIME MULTI-SYMPTOM COLD AND MUCINEX CHILDRENS NI [Suspect]
     Active Substance: ACETAMINOPHEN\DEXTROMETHORPHAN HYDROBROMIDE\DIPHENHYDRAMINE HYDROCHLORIDE\GUAIFENESIN\PHENYLEPHRINE
     Indication: Nasopharyngitis
     Route: 048
     Dates: start: 20231215, end: 20231216
  2. CRESTOR [Concomitant]
     Active Substance: ROSUVASTATIN CALCIUM
  3. COENZYME Q10 [Concomitant]
     Active Substance: DIETARY SUPPLEMENT\UBIDECARENONE
  4. HERBALS\TURMERIC [Concomitant]
     Active Substance: HERBALS\TURMERIC
  5. ASPIRIN [Concomitant]
     Active Substance: ASPIRIN
  6. MUCINEX CHILDRENS DAY TIME MULTI-SYMPTOM COLD AND MUCINEX CHILDRENS NI [Suspect]
     Active Substance: ACETAMINOPHEN\DEXTROMETHORPHAN HYDROBROMIDE\DIPHENHYDRAMINE HYDROCHLORIDE\GUAIFENESIN\PHENYLEPHRINE
     Indication: Influenza

REACTIONS (4)
  - Dizziness [None]
  - Feeling abnormal [None]
  - Gait disturbance [None]
  - Movement disorder [None]

NARRATIVE: CASE EVENT DATE: 20231215
